FAERS Safety Report 9229060 (Version 3)
Quarter: 2013Q2

REPORT INFORMATION
  Report Type: Spontaneous
  Country: FR (occurrence: FR)
  Receive Date: 20130412
  Receipt Date: 20130613
  Transmission Date: 20140414
  Serious: Yes (Life-Threatening, Hospitalization)
  Sender: FDA-Public Use
  Company Number: FR-ASTRAZENECA-2013SE23115

PATIENT
  Age: 12522 Day
  Sex: Female
  Weight: 85 kg

DRUGS (9)
  1. XEROQUEL [Suspect]
     Indication: BIPOLAR I DISORDER
     Route: 048
     Dates: start: 20121122, end: 20130211
  2. HALDOL [Concomitant]
     Indication: PSYCHOTIC DISORDER
     Dates: start: 2010
  3. HALDOL [Concomitant]
     Indication: BIPOLAR I DISORDER
     Dates: start: 2010
  4. TERCIAN [Concomitant]
     Indication: PSYCHOTIC DISORDER
     Dates: start: 2011
  5. TERCIAN [Concomitant]
     Indication: BIPOLAR I DISORDER
     Dates: start: 2011
  6. EFFEXOR [Concomitant]
     Indication: PSYCHOTIC DISORDER
     Dates: start: 2006
  7. EFFEXOR [Concomitant]
     Indication: BIPOLAR I DISORDER
     Dates: start: 2006
  8. METFORMIN [Concomitant]
     Indication: TYPE 2 DIABETES MELLITUS
     Dates: start: 2006
  9. JANUVIA [Concomitant]
     Indication: TYPE 2 DIABETES MELLITUS
     Dates: start: 2006

REACTIONS (5)
  - Acute respiratory distress syndrome [Recovering/Resolving]
  - Aspiration [Recovering/Resolving]
  - Delirium [Unknown]
  - Dysphagia [Recovered/Resolved with Sequelae]
  - Bronchitis [Unknown]
